FAERS Safety Report 4521589-8 (Version None)
Quarter: 2004Q4

REPORT INFORMATION
  Report Type: 
  Country: None (occurrence: None)
  Receive Date: 20041206
  Receipt Date: 20041122
  Transmission Date: 20050328
  Serious: Yes (Other)
  Sender: FDA-Public Use
  Company Number: 2004097653

PATIENT
  Sex: Male

DRUGS (1)
  1. NICOTROL [Suspect]
     Indication: SMOKING CESSATION THERAPY
     Dosage: 4 PACKS IN 8 DAYS, NASAL
     Route: 045
     Dates: start: 20040401

REACTIONS (1)
  - DRUG DEPENDENCE [None]
